FAERS Safety Report 21634530 (Version 1)
Quarter: 2022Q4

REPORT INFORMATION
  Report Type: Spontaneous
  Country: CA (occurrence: CA)
  Receive Date: 20221123
  Receipt Date: 20221123
  Transmission Date: 20230113
  Serious: Yes (Death, Hospitalization)
  Sender: FDA-Public Use
  Company Number: CA-BAYER-2022P022242

PATIENT
  Age: 86 Year
  Sex: Male

DRUGS (1)
  1. NUBEQA [Suspect]
     Active Substance: DAROLUTAMIDE

REACTIONS (5)
  - Spinal cord injury cervical [None]
  - Cervical vertebral fracture [Fatal]
  - Extradural haematoma [Fatal]
  - Hemiparesis [None]
  - Fall [Fatal]
